FAERS Safety Report 9072100 (Version 1)
Quarter: 2013Q1

REPORT INFORMATION
  Report Type: Spontaneous
  Country: US (occurrence: US)
  Receive Date: 20130206
  Receipt Date: 20130206
  Transmission Date: 20140127
  Serious: No
  Sender: FDA-Public Use
  Company Number: US-ALLERGAN-1216003US

PATIENT
  Sex: Female

DRUGS (11)
  1. RESTASIS? [Suspect]
     Indication: DRY EYE
     Dosage: 2 GTT, BID
     Route: 047
     Dates: start: 201210
  2. DIOVAN HCT [Concomitant]
     Indication: HYPERTENSION
     Dosage: UNK
  3. TRAZADONE [Concomitant]
     Indication: INSOMNIA
     Dosage: UNK
  4. CITALOPRAM                         /00582602/ [Concomitant]
     Indication: DEPRESSION
     Dosage: UNK
  5. CITALOPRAM                         /00582602/ [Concomitant]
     Indication: ANXIETY
  6. MICONAZOLE [Concomitant]
     Indication: SKIN IRRITATION
     Dosage: UNK UNK, PRN
     Route: 061
  7. KETOCONAZOLE [Concomitant]
     Indication: SKIN IRRITATION
     Dosage: UNK UNK, PRN
     Route: 061
  8. CLOBETASOL [Concomitant]
     Indication: SKIN IRRITATION
     Dosage: UNK UNK, PRN
     Route: 061
  9. PROTOPIC [Concomitant]
     Indication: SKIN IRRITATION
     Dosage: UNK UNK, PRN
     Route: 061
  10. CRESTOR                            /01588601/ [Concomitant]
     Indication: BLOOD CHOLESTEROL INCREASED
     Dosage: UNK
  11. GABAPENTIN [Concomitant]
     Indication: NEUROPATHY PERIPHERAL
     Dosage: UNK

REACTIONS (1)
  - Dry eye [Unknown]
